FAERS Safety Report 4376881-7 (Version None)
Quarter: 2004Q2

REPORT INFORMATION
  Report Type: 
  Country: None (occurrence: None)
  Receive Date: 20040608
  Receipt Date: 20030522
  Transmission Date: 20050107
  Serious: Yes (Other)
  Sender: FDA-Public Use
  Company Number: 200311751BCC

PATIENT
  Age: 44 Year
  Sex: Female
  Weight: 108.8633 kg

DRUGS (8)
  1. ALEVE [Suspect]
     Indication: NEUROPATHIC PAIN
     Dosage: 220 MG, ONCE, ORAL
     Route: 048
     Dates: start: 20030511
  2. MONOPRIL [Concomitant]
  3. LANOXIN [Concomitant]
  4. INSULIN [Concomitant]
  5. HYDROCORTISONE [Concomitant]
  6. FLURAZEPAM [Concomitant]
  7. HYDROCODONE [Concomitant]
  8. LASIX [Concomitant]

REACTIONS (3)
  - HYPERSENSITIVITY [None]
  - OROPHARYNGEAL SWELLING [None]
  - SWELLING FACE [None]
